FAERS Safety Report 12621542 (Version 1)
Quarter: 2016Q3

REPORT INFORMATION
  Report Type: Report from Study
  Country: US (occurrence: US)
  Receive Date: 20160804
  Receipt Date: 20160804
  Transmission Date: 20161109
  Serious: Yes (Other)
  Sender: FDA-Public Use
  Company Number: US-ROCHE-766291

PATIENT
  Age: 47 Year
  Sex: Male
  Weight: 93.3 kg

DRUGS (3)
  1. ERLOTINIB [Suspect]
     Active Substance: ERLOTINIB
     Indication: NEOPLASM
     Dosage: 75 MG, QD, MOST RECENT DOSE: 13/JUL/2010
     Route: 048
  2. GEMCITABINE HYDROCHLORIDE. [Suspect]
     Active Substance: GEMCITABINE HYDROCHLORIDE
     Indication: NEOPLASM
     Dosage: 750 MG/M2, UNK, MOST RECENT DOSE: 13/JUL/2010
     Route: 042
  3. VISMODEGIB [Suspect]
     Active Substance: VISMODEGIB
     Indication: NEOPLASM
     Dosage: 150 MG, QD, MOST RECENT DOSE: 13/JUL/2010
     Route: 048

REACTIONS (4)
  - Pruritus [Recovered/Resolved]
  - Platelet count decreased [Recovered/Resolved]
  - White blood cell count decreased [Recovered/Resolved]
  - Neutrophil count decreased [Recovered/Resolved]

NARRATIVE: CASE EVENT DATE: 20100713
